FAERS Safety Report 7902000-3 (Version None)
Quarter: 2011Q4

REPORT INFORMATION
  Report Type: 
  Country: None (occurrence: None)
  Receive Date: 20111108
  Receipt Date: 20111102
  Transmission Date: 20120403
  Serious: Yes (Other)
  Sender: FDA-Public Use
  Company Number: US-GLAXOSMITHKLINE-A0938030A

PATIENT
  Age: 81 Year
  Sex: Female

DRUGS (9)
  1. PROAIR HFA [Concomitant]
  2. ATENOLOL [Concomitant]
  3. VITAMIN B-12 [Concomitant]
  4. ADVAIR DISKUS 100/50 [Suspect]
     Indication: CHRONIC OBSTRUCTIVE PULMONARY DISEASE
     Dosage: 1PUFF PER DAY
     Route: 055
     Dates: start: 20110703, end: 20110705
  5. LOVAZA [Concomitant]
  6. FUROSEMIDE [Concomitant]
  7. VITAMIN D [Concomitant]
  8. SPIRIVA [Concomitant]
  9. ASPIRIN [Concomitant]

REACTIONS (6)
  - APHASIA [None]
  - DEPRESSED MOOD [None]
  - OROPHARYNGEAL PAIN [None]
  - GLOSSODYNIA [None]
  - DRY MOUTH [None]
  - DYSPHONIA [None]
